FAERS Safety Report 4467853-2 (Version None)
Quarter: 2004Q4

REPORT INFORMATION
  Report Type: 
  Country: None (occurrence: None)
  Receive Date: 20041005
  Receipt Date: 20040922
  Transmission Date: 20050328
  Serious: Yes (Other)
  Sender: FDA-Public Use
  Company Number: 2004068916

PATIENT
  Age: 51 Year
  Sex: Female
  Weight: 74.8435 kg

DRUGS (1)
  1. NEOSPORIN [Suspect]
     Indication: WOUND
     Dosage: SMALL AMOUNT TID, TOPICAL
     Route: 061
     Dates: start: 20040920, end: 20040920

REACTIONS (6)
  - DRUG HYPERSENSITIVITY [None]
  - EYE IRRITATION [None]
  - EYE SWELLING [None]
  - FACE OEDEMA [None]
  - PRURITUS [None]
  - RASH [None]
